FAERS Safety Report 12757106 (Version 2)
Quarter: 2016Q4

REPORT INFORMATION
  Report Type: Spontaneous
  Country: JP (occurrence: JP)
  Receive Date: 20160918
  Receipt Date: 20161005
  Transmission Date: 20170207
  Serious: No
  Sender: FDA-Public Use
  Company Number: JP-009507513-1609JPN005858

PATIENT
  Sex: Female

DRUGS (3)
  1. LOXONIN [Suspect]
     Active Substance: LOXOPROFEN SODIUM
     Indication: OSTEOARTHRITIS
     Dosage: 60 MG, TID
     Route: 048
     Dates: start: 20160815
  2. CALONAL [Concomitant]
     Active Substance: ACETAMINOPHEN
     Indication: OSTEOARTHRITIS
     Dosage: DAILY DOSEAGE UNKNOWN
     Route: 048
     Dates: start: 20160815
  3. BELSOMRA [Suspect]
     Active Substance: SUVOREXANT
     Indication: INSOMNIA
     Dosage: 15 MG, 1 DAY
     Route: 048
     Dates: start: 20160826, end: 20160830

REACTIONS (1)
  - Thirst [Recovering/Resolving]

NARRATIVE: CASE EVENT DATE: 20160829
